FAERS Safety Report 6768262-3 (Version None)
Quarter: 2010Q2

REPORT INFORMATION
  Report Type: 
  Country: None (occurrence: None)
  Receive Date: 20100614
  Receipt Date: 20100609
  Transmission Date: 20101027
  Serious: Yes (Death)
  Sender: FDA-Public Use
  Company Number: US-GILEAD-2010-0029564

PATIENT
  Sex: Male
  Weight: 61.29 kg

DRUGS (11)
  1. LETAIRIS [Suspect]
     Indication: PULMONARY ARTERIAL HYPERTENSION
     Route: 048
     Dates: start: 20070730, end: 20100525
  2. COUMADIN [Concomitant]
  3. ASPIRIN [Concomitant]
  4. LISINOPRIL [Concomitant]
  5. METOPROLOL TARTRATE [Concomitant]
  6. LIPITOR [Concomitant]
  7. PROTONIX [Concomitant]
  8. PROGRAF [Concomitant]
  9. BACTRIM [Concomitant]
  10. ALLOPURINOL [Concomitant]
  11. MAGNESIUM GLUC [Concomitant]

REACTIONS (1)
  - CARDIAC FAILURE [None]
